FAERS Safety Report 8262894-1 (Version None)
Quarter: 2012Q2

REPORT INFORMATION
  Report Type: 
  Country: None (occurrence: None)
  Receive Date: 20120405
  Receipt Date: 20120330
  Transmission Date: 20120825
  Serious: Yes (Death)
  Sender: FDA-Public Use
  Company Number: US-GLAXOSMITHKLINE-A0972388A

PATIENT
  Age: 55 Year
  Sex: Male

DRUGS (28)
  1. MELATONIN [Concomitant]
  2. VITAMIN D [Concomitant]
  3. METHIMAZOLE [Concomitant]
  4. OXYCODONE HCL [Concomitant]
  5. DIPHENHYDRAMINE HCL [Concomitant]
  6. RESTASIS [Concomitant]
  7. BUPROPION HYDROCHLORIDE [Concomitant]
  8. L-CARNITINE [Concomitant]
  9. ZOMETA [Concomitant]
  10. DIAZEPAM [Concomitant]
  11. PEPCID AC [Concomitant]
  12. TYKERB [Suspect]
     Indication: BREAST CANCER
     Dosage: 1250MG PER DAY
     Route: 048
     Dates: start: 20110204
  13. MAGNESIUM HYDROXIDE TAB [Concomitant]
  14. IBUPROFEN [Concomitant]
  15. ACETAMINOPHEN [Concomitant]
  16. METOCLOPRAMIDE [Concomitant]
  17. DEXAMETHASONE [Concomitant]
  18. HERCEPTIN [Concomitant]
  19. CITALOPRAM HYDROBROMIDE [Concomitant]
  20. PANTOPRAZOLE [Concomitant]
  21. SUDAFED 12 HOUR [Concomitant]
  22. DOCUSATE [Concomitant]
  23. LOVAZA [Concomitant]
  24. ALOXI [Concomitant]
  25. ONDANSETRON [Concomitant]
  26. AMITIZA [Concomitant]
  27. OXYCONTIN [Concomitant]
  28. GREEN TEA EXTRACT [Concomitant]

REACTIONS (1)
  - DEATH [None]
